FAERS Safety Report 18702612 (Version 4)
Quarter: 2021Q2

REPORT INFORMATION
  Report Type: Spontaneous
  Country: JP (occurrence: JP)
  Receive Date: 20210105
  Receipt Date: 20210609
  Transmission Date: 20210717
  Serious: Yes (Death, Other)
  Sender: FDA-Public Use
  Company Number: JP-BAYER-2020-271785

PATIENT
  Age: 65 Year
  Sex: Female
  Weight: 52.8 kg

DRUGS (2)
  1. STIVARGA [Suspect]
     Active Substance: REGORAFENIB
     Indication: COLORECTAL CANCER
     Dosage: 160 MG DAILY, 3 CONSECUTIVE WEEKS ADMINISTRATION 1 WEEK WITHDRAWAL
     Route: 048
     Dates: start: 20201023, end: 20201105
  2. STIVARGA [Suspect]
     Active Substance: REGORAFENIB
     Indication: COLORECTAL CANCER
     Dosage: 120 MG DAILY, 3 CONSECUTIVE WEEKS ADMINISTRATION 1 WEEK WITHDRAWAL
     Route: 048
     Dates: start: 20201113, end: 20201125

REACTIONS (6)
  - Depressed level of consciousness [None]
  - Hyperammonaemia [None]
  - Drug eruption [Recovered/Resolved]
  - Coagulopathy [None]
  - Liver disorder [Recovered/Resolved]
  - Acute hepatic failure [Fatal]

NARRATIVE: CASE EVENT DATE: 20201105
